FAERS Safety Report 10157909 (Version 2)
Quarter: 2014Q2

REPORT INFORMATION
  Report Type: Spontaneous
  Country: CH (occurrence: CH)
  Receive Date: 20140507
  Receipt Date: 20140508
  Transmission Date: 20141212
  Serious: Yes (Life-Threatening, Hospitalization)
  Sender: FDA-Public Use
  Company Number: CH-ELI_LILLY_AND_COMPANY-CH201404009750

PATIENT
  Age: 65 Year
  Sex: Male
  Weight: 63 kg

DRUGS (2)
  1. ALIMTA [Suspect]
     Indication: NON-SMALL CELL LUNG CANCER
     Dosage: 400 MG, UNK
     Route: 065
     Dates: start: 20140401
  2. CARBOPLATINE [Concomitant]
     Indication: NON-SMALL CELL LUNG CANCER
     Dosage: 460 MG, UNK
     Route: 042
     Dates: start: 20140401

REACTIONS (4)
  - Febrile neutropenia [Unknown]
  - Anaemia [Unknown]
  - Thrombocytopenia [Unknown]
  - Off label use [Unknown]
